FAERS Safety Report 23688620 (Version 1)
Quarter: 2024Q1

REPORT INFORMATION
  Report Type: Report from Study
  Country: CA (occurrence: CA)
  Receive Date: 20240329
  Receipt Date: 20240329
  Transmission Date: 20240410
  Serious: Yes (Death)
  Sender: FDA-Public Use
  Company Number: CA-MYLANLABS-2024M1028634

PATIENT
  Age: 33 Year
  Sex: Female

DRUGS (1)
  1. CLOZAPINE [Suspect]
     Active Substance: CLOZAPINE
     Indication: Product used for unknown indication
     Dosage: UNK, (MOST RECENT START DATE IS ON OR ABOUT 30-NOV-2023)
     Route: 065
     Dates: start: 202311

REACTIONS (2)
  - Death [Fatal]
  - Neutrophil count abnormal [Unknown]

NARRATIVE: CASE EVENT DATE: 20231222
